FAERS Safety Report 4609043-6 (Version None)
Quarter: 2005Q1

REPORT INFORMATION
  Report Type: 
  Country: None (occurrence: None)
  Receive Date: 20050315
  Receipt Date: 20050214
  Transmission Date: 20050727
  Serious: Yes (Hospitalization)
  Sender: FDA-Public Use
  Company Number: GR-ABBOTT-05P-066-0290573-00

PATIENT
  Age: 95 Year
  Sex: Female

DRUGS (6)
  1. KLARICID [Suspect]
     Indication: BRONCHITIS ACUTE
     Route: 048
     Dates: start: 20050107, end: 20050109
  2. KLARICID [Suspect]
     Indication: PYREXIA
  3. KLARICID [Suspect]
     Indication: PRODUCTIVE COUGH
  4. PROPAFENONE HYDROCHLORIDE [Concomitant]
     Indication: ATRIAL FIBRILLATION
  5. ACENOCOUMAROL [Concomitant]
     Indication: ATRIAL FIBRILLATION
  6. HYPERTENSIVE AGENTS [Concomitant]
     Indication: HYPERTENSION

REACTIONS (2)
  - FEELING ABNORMAL [None]
  - SUPRAVENTRICULAR TACHYCARDIA [None]
